FAERS Safety Report 13578889 (Version 1)
Quarter: 2017Q2

REPORT INFORMATION
  Report Type: Spontaneous
  Country: US (occurrence: US)
  Receive Date: 20170524
  Receipt Date: 20170524
  Transmission Date: 20170830
  Serious: Yes (Other)
  Sender: FDA-Public Use
  Company Number: US-JAZZ-2017-US-005027

PATIENT
  Age: 31 Year
  Sex: Female

DRUGS (1)
  1. XYREM [Suspect]
     Active Substance: SODIUM OXYBATE
     Indication: NARCOLEPSY
     Dosage: 2.25G, BID
     Route: 048
     Dates: start: 201704, end: 20170418

REACTIONS (16)
  - Hunger [Unknown]
  - Dizziness [Unknown]
  - Muscle twitching [Unknown]
  - Hangover [Unknown]
  - Nausea [Unknown]
  - Palpitations [Unknown]
  - Hypertension [Recovered/Resolved]
  - Feeling abnormal [Unknown]
  - Hypoaesthesia [Not Recovered/Not Resolved]
  - Headache [Unknown]
  - Tremor [Unknown]
  - Postural orthostatic tachycardia syndrome [Unknown]
  - Dehydration [Unknown]
  - Paraesthesia [Unknown]
  - Muscle spasms [Unknown]
  - Feeling drunk [Unknown]

NARRATIVE: CASE EVENT DATE: 201704
